FAERS Safety Report 5521609-8 (Version None)
Quarter: 2007Q4

REPORT INFORMATION
  Report Type: 
  Country: None (occurrence: None)
  Receive Date: 20071120
  Receipt Date: 20071115
  Transmission Date: 20080405
  Serious: Yes (Life-Threatening, Hospitalization)
  Sender: FDA-Public Use
  Company Number: US-BRISTOL-MYERS SQUIBB COMPANY-13984281

PATIENT
  Age: 49 Year
  Sex: Female
  Weight: 47 kg

DRUGS (4)
  1. CYTOXAN [Suspect]
     Indication: BREAST CANCER
     Dates: start: 20070712
  2. ADRIAMYCIN PFS [Suspect]
     Indication: BREAST CANCER
     Dates: start: 20070712
  3. TAXOTERE [Suspect]
     Indication: BREAST CANCER
     Dates: start: 20070712
  4. NEULASTA [Concomitant]
     Dates: start: 20070713

REACTIONS (3)
  - FEBRILE NEUTROPENIA [None]
  - HYPOTENSION [None]
  - PNEUMONIA [None]
